FAERS Safety Report 6522139-7 (Version None)
Quarter: 2009Q4

REPORT INFORMATION
  Report Type: 
  Country: None (occurrence: None)
  Receive Date: 20091229
  Receipt Date: 20091229
  Transmission Date: 20100525
  Serious: Yes (Other)
  Sender: FDA-Public Use
  Company Number: None

PATIENT
  Age: 11 Year
  Sex: Male
  Weight: 35.3806 kg

DRUGS (1)
  1. SINGULAIR [Suspect]
     Indication: ASTHMA
     Dosage: 1 PER DAY PO
     Route: 048
     Dates: start: 20000324, end: 20091210

REACTIONS (2)
  - FOOT DEFORMITY [None]
  - HAND DEFORMITY [None]
